FAERS Safety Report 7183942-6 (Version None)
Quarter: 2010Q4

REPORT INFORMATION
  Report Type: 
  Country: None (occurrence: None)
  Receive Date: 20101222
  Receipt Date: 20101213
  Transmission Date: 20110411
  Serious: Yes (Life-Threatening)
  Sender: FDA-Public Use
  Company Number: FR-BRISTOL-MYERS SQUIBB COMPANY-15451586

PATIENT
  Age: 71 Year
  Sex: Female

DRUGS (7)
  1. GLUCOVANCE [Suspect]
     Indication: TYPE 2 DIABETES MELLITUS
     Dates: end: 20101025
  2. GLICLAZIDE [Suspect]
     Indication: TYPE 2 DIABETES MELLITUS
     Route: 048
     Dates: end: 20101025
  3. VALSARTAN [Concomitant]
     Indication: HYPERTENSION
     Route: 048
  4. NICARDIPINE HCL [Concomitant]
     Indication: HYPERTENSION
  5. ATORVASTATIN [Concomitant]
     Route: 048
  6. LANZOR [Concomitant]
     Dosage: LANZOR 15MG
     Route: 048
  7. ALPRAZOLAM [Concomitant]
     Route: 048

REACTIONS (2)
  - DECREASED APPETITE [None]
  - HYPOGLYCAEMIC COMA [None]
